FAERS Safety Report 9326545 (Version 1)
Quarter: 2013Q2

REPORT INFORMATION
  Report Type: Spontaneous
  Country: US (occurrence: US)
  Receive Date: 20130604
  Receipt Date: 20130604
  Transmission Date: 20140414
  Serious: No
  Sender: FDA-Public Use
  Company Number: US-AMGEN-USASP2013031670

PATIENT
  Age: 26 Year
  Sex: Female

DRUGS (4)
  1. ENBREL [Suspect]
     Indication: RHEUMATOID ARTHRITIS
     Dosage: UNK UNK, QWK
     Dates: start: 20110102, end: 2011
  2. METHOTREXATE [Concomitant]
     Dosage: UNK UNK, QWK
     Route: 048
  3. SULFASALAZINE [Concomitant]
     Dosage: 150 MG, BID
     Route: 048
     Dates: start: 2012
  4. ORENCIA [Concomitant]
     Dosage: UNK

REACTIONS (4)
  - Pain in extremity [Not Recovered/Not Resolved]
  - Arthralgia [Not Recovered/Not Resolved]
  - Dyspepsia [Recovered/Resolved]
  - Alopecia [Recovered/Resolved]
